FAERS Safety Report 7927807-8 (Version None)
Quarter: 2011Q4

REPORT INFORMATION
  Report Type: 
  Country: None (occurrence: None)
  Receive Date: 20111118
  Receipt Date: 20110802
  Transmission Date: 20120403
  Serious: No
  Sender: FDA-Public Use
  Company Number: US-BAYER-2011-068612

PATIENT
  Sex: Male

DRUGS (1)
  1. LEVITRA [Suspect]

REACTIONS (4)
  - FEELING ABNORMAL [None]
  - NAUSEA [None]
  - HEADACHE [None]
  - DRUG INEFFECTIVE [None]
